FAERS Safety Report 5149442-X (Version None)
Quarter: 2006Q4

REPORT INFORMATION
  Report Type: 
  Country: None (occurrence: None)
  Receive Date: 20061113
  Receipt Date: 20060118
  Transmission Date: 20070319
  Serious: No
  Sender: FDA-Public Use
  Company Number: US-GLAXOSMITHKLINE-A0589857A

PATIENT
  Age: 33 Year
  Sex: Female

DRUGS (3)
  1. COREG [Suspect]
     Dosage: 3.125MG TWICE PER DAY
     Route: 048
     Dates: start: 20051117
  2. DIGOXIN [Suspect]
  3. ENALAPRIL MALEATE [Suspect]

REACTIONS (1)
  - ALOPECIA [None]
